FAERS Safety Report 26151109 (Version 1)
Quarter: 2025Q4

REPORT INFORMATION
  Report Type: Spontaneous
  Country: US (occurrence: None)
  Receive Date: 20251211
  Receipt Date: 20251211
  Transmission Date: 20260117
  Serious: Yes (Death)
  Sender: FDA-CTU
  Company Number: None

PATIENT
  Age: 61 Year
  Sex: Male
  Weight: 90 kg

DRUGS (3)
  1. ADBRY [Suspect]
     Active Substance: TRALOKINUMAB-LDRM
     Indication: Dermatitis atopic
     Dosage: OTHER FREQUENCY : EVERY TWO WEEKS;
     Route: 058
     Dates: start: 20250617
  2. LOSARTAN [Concomitant]
     Active Substance: LOSARTAN
  3. Carvedilol 12.5 mg tabs [Concomitant]

REACTIONS (1)
  - Anaphylactic reaction [None]

NARRATIVE: CASE EVENT DATE: 20251105
